FAERS Safety Report 7806755-8 (Version None)
Quarter: 2011Q4

REPORT INFORMATION
  Report Type: 
  Country: None (occurrence: None)
  Receive Date: 20111011
  Receipt Date: 20100705
  Transmission Date: 20120403
  Serious: Yes (Death)
  Sender: FDA-Public Use
  Company Number: US-JNJFOC-20111001840

PATIENT
  Sex: Male

DRUGS (4)
  1. CONCENTRATED MOTRIN INFANTS DROPS [Suspect]
  2. CONCENTRATED TYLENOL INFANT DROPS [Suspect]
  3. CONCENTRATED MOTRIN INFANTS DROPS [Suspect]
     Indication: PRODUCT USED FOR UNKNOWN INDICATION
  4. CONCENTRATED TYLENOL INFANT DROPS [Suspect]
     Indication: PRODUCT USED FOR UNKNOWN INDICATION

REACTIONS (1)
  - DEATH [None]
